FAERS Safety Report 18284903 (Version 1)
Quarter: 2020Q3

REPORT INFORMATION
  Report Type: Spontaneous
  Country: BR (occurrence: BR)
  Receive Date: 20200918
  Receipt Date: 20200918
  Transmission Date: 20201103
  Serious: Yes (Death, Hospitalization)
  Sender: FDA-Public Use
  Company Number: BR-HQ SPECIALTY-BR-2020INT000115

PATIENT
  Age: 23 Year
  Sex: Female

DRUGS (2)
  1. CISPLATIN. [Suspect]
     Active Substance: CISPLATIN
     Indication: SQUAMOUS CELL CARCINOMA OF THE ORAL CAVITY
     Dosage: 50 ML, 1 SESSION
     Route: 065
  2. RADIOTHERAPY [Concomitant]
     Active Substance: RADIATION THERAPY
     Indication: SQUAMOUS CELL CARCINOMA OF THE ORAL CAVITY
     Dosage: 180 CGY (PLANNED: 50.4 GY (28 X 180 CGY) + 200 CGY DOSE BOOST (PLANNED: 20 GY [10 X 200 CGY])
     Route: 065

REACTIONS (4)
  - Cardio-respiratory arrest [Fatal]
  - Metabolic acidosis [Fatal]
  - Acute kidney injury [Fatal]
  - Acute respiratory failure [Fatal]
